FAERS Safety Report 4707119-6 (Version None)
Quarter: 2005Q3

REPORT INFORMATION
  Report Type: 
  Country: None (occurrence: None)
  Receive Date: 20050706
  Receipt Date: 20040205
  Transmission Date: 20060218
  Serious: Yes (Life-Threatening, Hospitalization)
  Sender: FDA-Public Use
  Company Number: BR-ROCHE-358103

PATIENT
  Age: 35 Year
  Sex: Male
  Weight: 62 kg

DRUGS (47)
  1. DACLIZUMAB [Suspect]
     Route: 042
     Dates: start: 20030924, end: 20030924
  2. DACLIZUMAB [Suspect]
     Route: 042
     Dates: start: 20031003, end: 20031104
  3. MYCOPHENOLATE MOFETIL [Suspect]
     Route: 048
     Dates: start: 20031125, end: 20040317
  4. MYCOPHENOLATE MOFETIL [Suspect]
     Route: 048
     Dates: start: 20030923, end: 20031015
  5. MYCOPHENOLATE MOFETIL [Suspect]
     Route: 048
     Dates: start: 20031015
  6. MYCOPHENOLATE MOFETIL [Suspect]
     Route: 048
     Dates: start: 20031028
  7. MYCOPHENOLATE MOFETIL [Suspect]
     Route: 048
     Dates: start: 20031101, end: 20031115
  8. MYCOPHENOLATE MOFETIL [Suspect]
     Route: 048
     Dates: start: 20031116, end: 20031123
  9. MYCOPHENOLATE MOFETIL [Suspect]
     Route: 048
     Dates: start: 20031124, end: 20031124
  10. MYCOPHENOLATE MOFETIL [Suspect]
     Route: 048
     Dates: start: 20040323
  11. MYCOPHENOLATE MOFETIL [Suspect]
     Route: 048
     Dates: start: 20040408
  12. MYCOPHENOLATE MOFETIL [Suspect]
     Route: 048
     Dates: start: 20040612, end: 20040612
  13. MYCOPHENOLATE MOFETIL [Suspect]
     Route: 048
     Dates: start: 20040613
  14. MYCOPHENOLATE MOFETIL [Suspect]
     Route: 048
     Dates: start: 20040614
  15. MYCOPHENOLATE MOFETIL [Suspect]
     Route: 048
     Dates: start: 20040619
  16. MYCOPHENOLATE MOFETIL [Suspect]
     Route: 048
     Dates: start: 20040622
  17. SIROLIMUS [Suspect]
     Route: 048
     Dates: start: 20040203, end: 20040317
  18. SIROLIMUS [Suspect]
     Route: 048
     Dates: start: 20030923, end: 20030925
  19. SIROLIMUS [Suspect]
     Route: 048
     Dates: start: 20030926, end: 20031003
  20. SIROLIMUS [Suspect]
     Route: 048
     Dates: start: 20031004, end: 20031013
  21. SIROLIMUS [Suspect]
     Route: 048
     Dates: start: 20031014, end: 20031023
  22. SIROLIMUS [Suspect]
     Route: 048
     Dates: start: 20031024, end: 20031105
  23. SIROLIMUS [Suspect]
     Route: 048
     Dates: start: 20031106, end: 20040202
  24. SIROLIMUS [Suspect]
     Route: 048
     Dates: start: 20040318
  25. SIROLIMUS [Suspect]
     Route: 048
     Dates: start: 20040602, end: 20040616
  26. PREDNISONE TAB [Suspect]
     Route: 048
     Dates: start: 20040218
  27. PREDNISONE TAB [Suspect]
     Route: 048
     Dates: start: 20030926, end: 20031009
  28. PREDNISONE TAB [Suspect]
     Route: 048
     Dates: start: 20031010, end: 20031020
  29. PREDNISONE TAB [Suspect]
     Route: 048
     Dates: start: 20031021, end: 20040109
  30. PREDNISONE TAB [Suspect]
     Route: 048
     Dates: start: 20040110, end: 20040217
  31. PREDNISONE TAB [Suspect]
     Route: 048
     Dates: start: 20040408
  32. METHYLPREDNISOLONE 16MG TAB [Suspect]
     Dosage: FREQUENCY PROVIDED AS 'ONCE'.
     Route: 042
     Dates: start: 20030923, end: 20030923
  33. METHYLPREDNISOLONE 16MG TAB [Suspect]
     Dosage: FREQUENCY PROVIDED AS 'ONCE'.
     Route: 042
     Dates: start: 20030924, end: 20030924
  34. METHYLPREDNISOLONE 16MG TAB [Suspect]
     Dosage: FREQUENCY PROVIDED AS 'ONCE'.
     Route: 042
     Dates: start: 20030925, end: 20031003
  35. METHYLPREDNISOLONE 16MG TAB [Suspect]
     Dosage: FREQUENCY PROVIDED AS 'ONCE'.
     Route: 042
     Dates: start: 20031004, end: 20031102
  36. METHYLPREDNISOLONE 16MG TAB [Suspect]
     Dosage: FREQUENCY PROVIDED AS 'ONCE'.
     Route: 042
     Dates: start: 20031103
  37. METHYLPREDNISOLONE 16MG TAB [Suspect]
     Dosage: FREQUENCY PROVIDED AS 'ONCE'.
     Route: 042
     Dates: start: 20040528
  38. METHYLPREDNISOLONE 16MG TAB [Suspect]
     Dosage: FREQUENCY PROVIDED AS 'ONCE'.
     Route: 042
     Dates: start: 20040531
  39. ORTHOCLONE OKT3 [Concomitant]
     Dosage: PROVIDED AS 5MG ON 15 NOV 2003 AND 2.5MG ON 16, 19, 20, 22 AND 24 NOV 2003.
     Dates: start: 20031115, end: 20031124
  40. SULFAMETHOXAZOLE + TRIMETHOPRIM [Concomitant]
     Route: 048
     Dates: start: 20030927
  41. OMEPRAZOLE [Concomitant]
     Route: 048
     Dates: start: 20030924
  42. NIFEDIPINE [Concomitant]
     Route: 048
     Dates: start: 20031020, end: 20031118
  43. AMLODIPINE [Concomitant]
     Dosage: REPORTED AS 10MG BID 16-NOV-03 TO 26-NOV-03; THEN 5MG BID 27-NOV-2003.
     Route: 048
     Dates: start: 20031116, end: 20040618
  44. ALBENDAZOLE [Concomitant]
     Route: 048
     Dates: start: 20040517, end: 20040521
  45. TACROLIMUS [Concomitant]
     Dosage: REPORTED AS THERAPY STARTING ON 2 JUN 2004.  0.5MG BID FROM 6 JUNE 2004.
     Route: 048
     Dates: start: 20040602, end: 20040611
  46. FOLIC ACID [Concomitant]
     Route: 048
     Dates: start: 20040609
  47. VITAMIN B COMPLEX CAP [Concomitant]
     Route: 048
     Dates: start: 20040609

REACTIONS (12)
  - DEHYDRATION [None]
  - DIARRHOEA [None]
  - DRUG RESISTANCE [None]
  - GASTROENTERITIS [None]
  - HAEMODIALYSIS [None]
  - HIATUS HERNIA [None]
  - KIDNEY TRANSPLANT REJECTION [None]
  - METABOLIC ACIDOSIS [None]
  - PNEUMONIA [None]
  - RENAL IMPAIRMENT [None]
  - STRONGYLOIDIASIS [None]
  - TRANSPLANT REJECTION [None]
